FAERS Safety Report 20328082 (Version 8)
Quarter: 2025Q2

REPORT INFORMATION
  Report Type: Spontaneous
  Country: PT (occurrence: PT)
  Receive Date: 20220112
  Receipt Date: 20250415
  Transmission Date: 20250716
  Serious: Yes (Hospitalization, Other)
  Sender: MYLAN
  Company Number: PT-PFIZER INC-202101842107

PATIENT
  Age: 78 Year
  Sex: Female

DRUGS (6)
  1. METHOTREXATE [Suspect]
     Active Substance: METHOTREXATE
     Indication: Eosinophilic granulomatosis with polyangiitis
     Dosage: 10 MILLIGRAM,QW,(10 MG, WEEKLY)
  2. PREDNISOLONE [Suspect]
     Active Substance: PREDNISOLONE
     Indication: Eosinophilic granulomatosis with polyangiitis
     Dosage: 1 MILLIGRAM/KILOGRAM,QD,(1 MG/KG, DAILY)
  3. PREDNISOLONE [Suspect]
     Active Substance: PREDNISOLONE
     Dosage: 1 MILLIGRAM/KILOGRAM,QD,(1 MG/KG, DAILY)
  4. METHYLPREDNISOLONE [Suspect]
     Active Substance: METHYLPREDNISOLONE
     Indication: Eosinophilic granulomatosis with polyangiitis
     Dosage: 1 GRAM, QD
  5. CYCLOPHOSPHAMIDE [Suspect]
     Active Substance: CYCLOPHOSPHAMIDE
     Indication: Eosinophilic granulomatosis with polyangiitis
  6. CYCLOPHOSPHAMIDE [Suspect]
     Active Substance: CYCLOPHOSPHAMIDE

REACTIONS (8)
  - Cytomegalovirus colitis [Recovered/Resolved]
  - Intestinal perforation [Recovering/Resolving]
  - Cytomegalovirus infection [Recovering/Resolving]
  - Large intestine perforation [Recovering/Resolving]
  - Urinary tract infection [Unknown]
  - Drug-induced liver injury [Unknown]
  - Off label use [Unknown]
  - Drug effective for unapproved indication [Unknown]
